FAERS Safety Report 6049179-9 (Version None)
Quarter: 2009Q1

REPORT INFORMATION
  Report Type: 
  Country: None (occurrence: None)
  Receive Date: 20090123
  Receipt Date: 20090113
  Transmission Date: 20090719
  Serious: Yes (Hospitalization, Other)
  Sender: FDA-Public Use
  Company Number: IE-PFIZER INC-2008088384

PATIENT

DRUGS (3)
  1. LIPITOR [Suspect]
     Indication: HYPERLIPIDAEMIA
     Route: 048
     Dates: start: 20060328, end: 20080807
  2. MEMANTINE HCL [Concomitant]
     Indication: DEMENTIA
     Route: 048
     Dates: start: 20070101, end: 20080801
  3. ARICEPT [Concomitant]
     Dosage: 10 MG, 1X/DAY
     Route: 048
     Dates: start: 20040101

REACTIONS (1)
  - AUTOIMMUNE HEPATITIS [None]
